FAERS Safety Report 24460643 (Version 1)
Quarter: 2024Q4

REPORT INFORMATION
  Report Type: Other
  Country: US (occurrence: US)
  Receive Date: 20241018
  Receipt Date: 20241018
  Transmission Date: 20250115
  Serious: Yes (Other)
  Sender: ALVOGEN
  Company Number: US-ALVOGEN-2024095677

PATIENT
  Age: 48 Year
  Sex: Female

DRUGS (8)
  1. DOXORUBICIN [Suspect]
     Active Substance: DOXORUBICIN
     Indication: Hormone receptor positive breast cancer
     Dosage: CYCLE1 ?60MG/M2 IN EVERY CYCLE
  2. DOXORUBICIN [Suspect]
     Active Substance: DOXORUBICIN
     Indication: Hormone receptor positive breast cancer
     Dosage: CYCLE1 ?60MG/M2 IN EVERY CYCLE
  3. DOXORUBICIN [Suspect]
     Active Substance: DOXORUBICIN
     Indication: Hormone receptor positive breast cancer
     Dosage: CYCLE1 ?60MG/M2 IN EVERY CYCLE
  4. DOXORUBICIN [Suspect]
     Active Substance: DOXORUBICIN
     Indication: Hormone receptor positive breast cancer
     Dosage: CYCLE1 ?60MG/M2 IN EVERY CYCLE
  5. CYCLOPHOSPHAMIDE [Suspect]
     Active Substance: CYCLOPHOSPHAMIDE
     Indication: Hormone receptor positive breast cancer
     Dosage: CYCLE1?600MG/M2 IN EVERY CYCLE
  6. CYCLOPHOSPHAMIDE [Suspect]
     Active Substance: CYCLOPHOSPHAMIDE
     Indication: Hormone receptor positive breast cancer
     Dosage: CYCLE2?600MG/M2 IN EVERY CYCLE
  7. CYCLOPHOSPHAMIDE [Suspect]
     Active Substance: CYCLOPHOSPHAMIDE
     Indication: Hormone receptor positive breast cancer
     Dosage: CYCLE3?600MG/M2 IN EVERY CYCLE
  8. CYCLOPHOSPHAMIDE [Suspect]
     Active Substance: CYCLOPHOSPHAMIDE
     Indication: Hormone receptor positive breast cancer
     Dosage: CYCLE4?600MG/M2 IN EVERY CYCLE

REACTIONS (5)
  - Myocardial infarction [Unknown]
  - Neutropenia [Unknown]
  - Sinus tachycardia [Unknown]
  - Electrocardiogram ST segment abnormal [Unknown]
  - Electrocardiogram T wave abnormal [Unknown]
